FAERS Safety Report 12464185 (Version 1)
Quarter: 2016Q2

REPORT INFORMATION
  Report Type: Spontaneous
  Country: US (occurrence: None)
  Receive Date: 20160613
  Receipt Date: 20160613
  Transmission Date: 20160815
  Serious: Yes (Disabling)
  Sender: FDA-Public Use
  Company Number: None

PATIENT
  Age: 71 Year
  Sex: Male
  Weight: 104.33 kg

DRUGS (14)
  1. TAMSULOSIN [Concomitant]
     Active Substance: TAMSULOSIN
  2. MAGNESIUM [Concomitant]
     Active Substance: MAGNESIUM
  3. MULTI VITAMIN [Concomitant]
     Active Substance: VITAMINS
  4. LISINOPRIL. [Concomitant]
     Active Substance: LISINOPRIL
  5. ZINC [Concomitant]
     Active Substance: ZINC\ZINC CHLORIDE
  6. CINNAMON. [Concomitant]
     Active Substance: CINNAMON
  7. BUPROPION XL TER 150MG, 150 MG PAR PHARMA [Suspect]
     Active Substance: BUPROPION HYDROCHLORIDE
     Indication: DEPRESSION
     Dosage: 30 TABLET(S)  IN THE MORNING TAKEN BY MOUTH
     Route: 048
     Dates: start: 20160611, end: 20160611
  8. POTASSIUM CITRATE. [Concomitant]
     Active Substance: POTASSIUM CITRATE
  9. ALLOPURINOL. [Concomitant]
     Active Substance: ALLOPURINOL
  10. METFORMIN [Concomitant]
     Active Substance: METFORMIN HYDROCHLORIDE
  11. PARSLEY. [Concomitant]
     Active Substance: PARSLEY
  12. SIMVASTATIN. [Concomitant]
     Active Substance: SIMVASTATIN
  13. GLIPIZIDE. [Concomitant]
     Active Substance: GLIPIZIDE
  14. FINASTERIDE. [Concomitant]
     Active Substance: FINASTERIDE

REACTIONS (3)
  - Visual field defect [None]
  - Photopsia [None]
  - Visual impairment [None]

NARRATIVE: CASE EVENT DATE: 20160611
